FAERS Safety Report 6973229-6 (Version None)
Quarter: 2010Q3

REPORT INFORMATION
  Report Type: 
  Country: None (occurrence: None)
  Receive Date: 20100909
  Receipt Date: 20100830
  Transmission Date: 20110219
  Serious: Yes (Other)
  Sender: FDA-Public Use
  Company Number: DE-ROCHE-725498

PATIENT
  Sex: Female
  Weight: 57 kg

DRUGS (2)
  1. PEGINTERFERON ALFA-2A [Suspect]
     Route: 058
     Dates: start: 20100415, end: 20100806
  2. RIBAVIRIN [Suspect]
     Route: 048
     Dates: start: 20100415, end: 20100806

REACTIONS (1)
  - OTITIS MEDIA [None]
